FAERS Safety Report 4663996-9 (Version None)
Quarter: 2005Q2

REPORT INFORMATION
  Report Type: 
  Country: None (occurrence: None)
  Receive Date: 20050516
  Receipt Date: 20050516
  Transmission Date: 20051028
  Serious: No
  Sender: FDA-Public Use
  Company Number: None

PATIENT
  Age: 84 Year
  Sex: Male

DRUGS (8)
  1. PROPRANOLOL [Suspect]
     Indication: HYPERTENSION
     Dosage: ORAL
     Dates: start: 20040624
  2. BETA-BLOCKERS/RELATED TABLETS [Suspect]
     Dosage: 20.0 MILLIGRAM
     Dates: start: 20040624
  3. ADVAIR DISKUS 100/50 [Concomitant]
  4. PREVACID [Concomitant]
  5. SINGULAIR [Concomitant]
  6. LASIX [Concomitant]
  7. SSI [Concomitant]
  8. SPIRONOLOLACTONE [Concomitant]

REACTIONS (2)
  - HYPERKALAEMIA [None]
  - RENAL IMPAIRMENT [None]
